FAERS Safety Report 4309093-3 (Version None)
Quarter: 2004Q1

REPORT INFORMATION
  Report Type: 
  Country: None (occurrence: None)
  Receive Date: 20040302
  Receipt Date: 20040225
  Transmission Date: 20041129
  Serious: Yes (Death)
  Sender: FDA-Public Use
  Company Number: US-GLAXOSMITHKLINE-A0499845A

PATIENT
  Sex: Male

DRUGS (3)
  1. LAMICTAL [Suspect]
     Indication: BIPOLAR DISORDER
     Dosage: 4200MG SINGLE DOSE
     Route: 048
  2. EFFEXOR [Concomitant]
  3. LITHIUM [Concomitant]

REACTIONS (1)
  - OVERDOSE [None]
